FAERS Safety Report 5933247-3 (Version None)
Quarter: 2008Q4

REPORT INFORMATION
  Report Type: 
  Country: None (occurrence: None)
  Receive Date: 20081028
  Receipt Date: 20081023
  Transmission Date: 20090506
  Serious: Yes (Other)
  Sender: FDA-Public Use
  Company Number: FR-ROXANE LABORATORIES, INC.-2008-RO-00158RO

PATIENT

DRUGS (2)
  1. CLARITHROMYCIN [Suspect]
  2. CARBAMAZEPINE [Suspect]

REACTIONS (2)
  - DRUG INTERACTION [None]
  - DRUG TOXICITY [None]
